FAERS Safety Report 19151960 (Version 1)
Quarter: 2021Q2

REPORT INFORMATION
  Report Type: Spontaneous
  Country: CH (occurrence: CH)
  Receive Date: 20210419
  Receipt Date: 20210419
  Transmission Date: 20210717
  Serious: Yes (Other)
  Sender: FDA-Public Use
  Company Number: CH-SA-2021SA124412

PATIENT
  Age: 46 Year
  Sex: Male

DRUGS (1)
  1. RASBURICASE [Suspect]
     Active Substance: RASBURICASE
     Indication: CHEMOTHERAPY TOXICITY ATTENUATION
     Dosage: 7.5 MG, QD
     Route: 041
     Dates: start: 20210323, end: 20210323

REACTIONS (4)
  - Dyspnoea [Recovered/Resolved]
  - Chills [Recovered/Resolved]
  - Hypersensitivity [Recovered/Resolved]
  - Hyperhidrosis [Recovered/Resolved]

NARRATIVE: CASE EVENT DATE: 20210323
